FAERS Safety Report 8532618-9 (Version None)
Quarter: 2012Q3

REPORT INFORMATION
  Report Type: 
  Country: None (occurrence: None)
  Receive Date: 20120724
  Receipt Date: 20120714
  Transmission Date: 20120928
  Serious: Yes (Hospitalization)
  Sender: FDA-Public Use
  Company Number: US-BAYER-2012-014588

PATIENT
  Age: 17 Year
  Sex: Female
  Weight: 81.633 kg

DRUGS (5)
  1. DROSPIRENONE AND ETHINYL ESTRADIOL [Suspect]
     Indication: MENSTRUAL CYCLE MANAGEMENT
     Dosage: UNK
     Dates: start: 20090603, end: 20100423
  2. AMOXICILLIN [Concomitant]
     Dosage: 500 MG CAPSULES
  3. YASMIN [Suspect]
     Indication: MENSTRUAL CYCLE MANAGEMENT
     Dosage: UNK
     Dates: start: 20061024, end: 20080609
  4. PROMETHAZINE [Concomitant]
     Dosage: 25 MG TABLETS
  5. PROPOXYPHENE NAPSYLATE W/PARACETAMOL [Concomitant]
     Dosage: 650 MG TABS

REACTIONS (2)
  - BILIARY DYSKINESIA [None]
  - PAIN [None]
